FAERS Safety Report 10232305 (Version 2)
Quarter: 2014Q3

REPORT INFORMATION
  Report Type: Spontaneous
  Country: US (occurrence: US)
  Receive Date: 20140612
  Receipt Date: 20140722
  Transmission Date: 20150326
  Serious: Yes (Other)
  Sender: FDA-Public Use
  Company Number: US-PFIZER INC-2014159938

PATIENT
  Age: 77 Year
  Sex: Female
  Weight: 58.5 kg

DRUGS (1)
  1. LATANOPROST. [Suspect]
     Active Substance: LATANOPROST
     Indication: GLAUCOMA
     Dosage: UNK, SINGLE (1/1 GTT OU QHS )
     Route: 047
     Dates: start: 201301, end: 201301

REACTIONS (6)
  - Acne [Recovered/Resolved]
  - Scleral oedema [Recovered/Resolved]
  - Scleral discolouration [Recovered/Resolved]
  - Drug hypersensitivity [Unknown]
  - Skin discolouration [Recovered/Resolved]
  - Swelling face [Unknown]
